FAERS Safety Report 4682429-X (Version None)
Quarter: 2005Q2

REPORT INFORMATION
  Report Type: 
  Country: None (occurrence: None)
  Receive Date: 20050602
  Receipt Date: 20050602
  Transmission Date: 20051028
  Serious: Yes (Other)
  Sender: FDA-Public Use
  Company Number: None

PATIENT
  Age: 25 Year
  Sex: Male

DRUGS (2)
  1. TORADOL [Suspect]
     Dosage: TORADOL  60MG  IM X 1 DOSE
     Route: 030
     Dates: start: 20050321
  2. TORADOL [Suspect]
     Dosage: TORADOL  60MG  IM X 1 DOSE
     Route: 030
     Dates: start: 20050324

REACTIONS (3)
  - BLOOD CREATININE INCREASED [None]
  - RENAL FAILURE [None]
  - VOMITING [None]
